FAERS Safety Report 12590856 (Version 1)
Quarter: 2016Q3

REPORT INFORMATION
  Report Type: Spontaneous
  Country: DE (occurrence: DE)
  Receive Date: 20160726
  Receipt Date: 20160726
  Transmission Date: 20161109
  Serious: Yes (Other)
  Sender: FDA-Public Use
  Company Number: DE-CIPLA LTD.-2016DE10000

PATIENT

DRUGS (5)
  1. TAVEGIL [Concomitant]
     Active Substance: CLEMASTINE FUMARATE
     Dosage: 2 MG, UNK
     Route: 042
  2. DEXA [Concomitant]
     Active Substance: DEXAMETHASONE
     Dosage: 8 MG, UNK
     Route: 042
  3. ALOXI [Concomitant]
     Active Substance: PALONOSETRON HYDROCHLORIDE
     Dosage: 1 DF, UNK
     Route: 065
  4. RANITIC [Concomitant]
     Active Substance: RANITIDINE HYDROCHLORIDE
     Dosage: 50 MG, UNK
     Route: 042
  5. CARBOPLATIN. [Suspect]
     Active Substance: CARBOPLATIN
     Dosage: 230 MG/?
     Route: 042
     Dates: start: 20160419

REACTIONS (4)
  - Cold sweat [Unknown]
  - Erythema [Unknown]
  - Palpitations [Unknown]
  - Dyspnoea [Unknown]

NARRATIVE: CASE EVENT DATE: 20160419
